FAERS Safety Report 7737272-1 (Version None)
Quarter: 2011Q3

REPORT INFORMATION
  Report Type: 
  Country: None (occurrence: None)
  Receive Date: 20110908
  Receipt Date: 20110901
  Transmission Date: 20111222
  Serious: Yes (Other)
  Sender: FDA-Public Use
  Company Number: US-TEVA-299390USA

PATIENT
  Sex: Female

DRUGS (2)
  1. CLARAVIS [Suspect]
     Route: 048
     Dates: start: 20100609
  2. CLARAVIS [Suspect]
     Route: 048
     Dates: start: 20081223

REACTIONS (1)
  - UNINTENDED PREGNANCY [None]
